FAERS Safety Report 12553852 (Version 2)
Quarter: 2016Q3

REPORT INFORMATION
  Report Type: Spontaneous
  Country: JP (occurrence: JP)
  Receive Date: 20160713
  Receipt Date: 20160725
  Transmission Date: 20161109
  Serious: Yes (Hospitalization)
  Sender: FDA-Public Use
  Company Number: JP-JNJFOC-20160513587

PATIENT
  Age: 74 Year
  Sex: Female
  Weight: 51 kg

DRUGS (7)
  1. NEXIUM [Concomitant]
     Active Substance: ESOMEPRAZOLE MAGNESIUM
     Indication: OESOPHAGEAL ULCER
     Route: 048
     Dates: start: 201603
  2. ALLOID G [Concomitant]
     Active Substance: SODIUM ALGINATE
     Route: 048
     Dates: start: 201603
  3. XARELTO [Suspect]
     Active Substance: RIVAROXABAN
     Indication: PULMONARY INFARCTION
     Route: 048
     Dates: start: 20160320, end: 20160420
  4. XARELTO [Suspect]
     Active Substance: RIVAROXABAN
     Indication: EMBOLISM VENOUS
     Route: 048
     Dates: start: 20160320, end: 20160420
  5. XARELTO [Suspect]
     Active Substance: RIVAROXABAN
     Indication: DEEP VEIN THROMBOSIS
     Route: 048
     Dates: start: 20160320, end: 20160420
  6. ALUMINIUM HYDROXIDE W/MAGNESIUM HYDROXIDE [Concomitant]
     Active Substance: ALUMINUM HYDROXIDE\MAGNESIUM HYDROXIDE
     Route: 048
     Dates: start: 201603
  7. FERRIC HYDROXIDE POLYMALTOSE COMPLEX [Concomitant]
     Route: 048
     Dates: start: 20160317

REACTIONS (1)
  - Oesophageal ulcer [Recovered/Resolved]

NARRATIVE: CASE EVENT DATE: 20160418
